FAERS Safety Report 6466083-2 (Version None)
Quarter: 2009Q4

REPORT INFORMATION
  Report Type: 
  Country: None (occurrence: None)
  Receive Date: 20091201
  Receipt Date: 20091201
  Transmission Date: 20100525
  Serious: Yes (Other)
  Sender: FDA-Public Use
  Company Number: None

PATIENT
  Sex: Female
  Weight: 59.8748 kg

DRUGS (1)
  1. MAXAIR [Suspect]
     Indication: ASTHMA
     Dosage: 3 TIMES A DAY AS PRESCRIBED 0.2 MG PER ACTUATION

REACTIONS (2)
  - ALOPECIA [None]
  - ANGER [None]
